FAERS Safety Report 8395918-1 (Version None)
Quarter: 2012Q1

REPORT INFORMATION
  Report Type: 
  Country: None (occurrence: None)
  Receive Date: 20120323
  Receipt Date: 20110915
  Transmission Date: 20120608
  Serious: Yes (Other)
  Sender: FDA-Public Use
  Company Number: 163-21880-11033625

PATIENT
  Age: 66 Year
  Sex: Male
  Weight: 79.3795 kg

DRUGS (4)
  1. LYRICA [Concomitant]
  2. ACYCLOVIR [Concomitant]
  3. VITAMIN B12 [Concomitant]
  4. REVLIMID [Suspect]
     Indication: MULTIPLE MYELOMA
     Dosage: 15 MG, DAILY X 21 DAYS, PO
     Route: 048
     Dates: start: 20110310, end: 20110329

REACTIONS (6)
  - JOINT SWELLING [None]
  - CHILLS [None]
  - OEDEMA PERIPHERAL [None]
  - HYPERSENSITIVITY [None]
  - RASH GENERALISED [None]
  - PYREXIA [None]
